FAERS Safety Report 8297841-X (Version None)
Quarter: 2012Q2

REPORT INFORMATION
  Report Type: 
  Country: None (occurrence: None)
  Receive Date: 20120419
  Receipt Date: 20120413
  Transmission Date: 20120825
  Serious: Yes (Life-Threatening, Hospitalization, Other)
  Sender: FDA-Public Use
  Company Number: GB-B.I. PHARMACEUTICALS,INC./RIDGEFIELD-2012-UK-00531UK

PATIENT
  Sex: Male
  Weight: 89 kg

DRUGS (4)
  1. SPIRIVA [Suspect]
     Indication: BRONCHITIS
     Dosage: 18 MCG
     Route: 023
     Dates: start: 20111124, end: 20111124
  2. VARENICLINE [Suspect]
     Indication: SMOKING CESSATION THERAPY
     Dosage: 1000 MG
     Route: 048
     Dates: start: 20111124, end: 20111130
  3. CLARITHROMYCIN [Concomitant]
     Indication: BRONCHITIS
     Dosage: 500 MG
     Route: 048
     Dates: start: 20111124, end: 20111128
  4. PREDNISOLONE [Concomitant]
     Indication: BRONCHITIS
     Dosage: 30 MG
     Route: 048
     Dates: start: 20111124, end: 20111208

REACTIONS (7)
  - CARDIAC FAILURE ACUTE [None]
  - AORTIC STENOSIS [None]
  - ORTHOPNOEA [None]
  - DYSPNOEA [None]
  - DIZZINESS [None]
  - ATRIAL FIBRILLATION [None]
  - PALPITATIONS [None]
